FAERS Safety Report 5046760-0 (Version None)
Quarter: 2006Q3

REPORT INFORMATION
  Report Type: 
  Country: None (occurrence: None)
  Receive Date: 20060705
  Receipt Date: 20060705
  Transmission Date: 20061208
  Serious: Yes (Other)
  Sender: FDA-Public Use
  Company Number: None

PATIENT
  Age: 48 Year
  Sex: Female
  Weight: 80.6 kg

DRUGS (1)
  1. ETODOLAC [Suspect]
     Indication: PATELLOFEMORAL PAIN SYNDROME
     Dosage: 400 MG THREE TIMES DAILY PO
     Route: 048
     Dates: start: 20060505, end: 20060612

REACTIONS (5)
  - ERYTHEMA [None]
  - PHOTODERMATOSIS [None]
  - RASH PAPULAR [None]
  - SKIN EXFOLIATION [None]
  - URTICARIA [None]
